FAERS Safety Report 11064539 (Version 4)
Quarter: 2015Q2

REPORT INFORMATION
  Report Type: Spontaneous
  Country: US (occurrence: US)
  Receive Date: 20150424
  Receipt Date: 20150618
  Transmission Date: 20150821
  Serious: No
  Sender: FDA-Public Use
  Company Number: US-GLAXOSMITHKLINE-US2015045707

PATIENT
  Sex: Male

DRUGS (5)
  1. MEKINIST [Suspect]
     Active Substance: TRAMETINIB DIMETHYL SULFOXIDE
     Indication: MALIGNANT MELANOMA
     Dosage: 2 MG, QD
     Route: 065
     Dates: start: 20141218
  2. MEKINIST [Suspect]
     Active Substance: TRAMETINIB DIMETHYL SULFOXIDE
     Indication: BRAIN NEOPLASM
     Dosage: 2 MG, 1D
     Dates: start: 20141221
  3. TAFINLAR [Suspect]
     Active Substance: DABRAFENIB MESYLATE
     Indication: BRAIN NEOPLASM
     Dosage: 150 MG, BID
     Dates: start: 20141221, end: 20150318
  4. TAFINLAR [Suspect]
     Active Substance: DABRAFENIB MESYLATE
     Indication: MALIGNANT MELANOMA STAGE IV
     Dosage: 75 MG, U
     Dates: start: 20150324, end: 20150401
  5. LEVOTHYROXINE [Concomitant]
     Active Substance: LEVOTHYROXINE

REACTIONS (17)
  - Fatigue [Unknown]
  - Decreased appetite [Not Recovered/Not Resolved]
  - Asthenia [Unknown]
  - Depressed mood [Unknown]
  - Weight decreased [Not Recovered/Not Resolved]
  - Balance disorder [Unknown]
  - Chills [Not Recovered/Not Resolved]
  - Tremor [Unknown]
  - Cough [Not Recovered/Not Resolved]
  - Ageusia [Unknown]
  - Confusional state [Unknown]
  - Diarrhoea [Unknown]
  - Night sweats [Unknown]
  - Pyrexia [Not Recovered/Not Resolved]
  - Hypersomnia [Not Recovered/Not Resolved]
  - Blood urine present [Not Recovered/Not Resolved]
  - Rash [Not Recovered/Not Resolved]
